FAERS Safety Report 15736921 (Version 2)
Quarter: 2019Q1

REPORT INFORMATION
  Report Type: Report from Study
  Country: US (occurrence: US)
  Receive Date: 20181218
  Receipt Date: 20190104
  Transmission Date: 20190417
  Serious: Yes (Death, Hospitalization, Other)
  Sender: FDA-Public Use
  Company Number: US-ACTELION-A-US2018-182030

PATIENT
  Age: 65 Year
  Sex: Female
  Weight: 105.21 kg

DRUGS (5)
  1. VELETRI [Suspect]
     Active Substance: EPOPROSTENOL
     Dosage: 12.5 NG/KG, UNK
     Route: 042
  2. NIFEDIPINE. [Concomitant]
     Active Substance: NIFEDIPINE
  3. LETAIRIS [Concomitant]
     Active Substance: AMBRISENTAN
  4. VELETRI [Suspect]
     Active Substance: EPOPROSTENOL
     Indication: PULMONARY ARTERIAL HYPERTENSION
     Dosage: 3.5 NG/KG, PER MIN
     Route: 042
  5. VELETRI [Suspect]
     Active Substance: EPOPROSTENOL
     Dosage: 6.5 NG/KG, UNK
     Route: 042

REACTIONS (26)
  - Application site laceration [Unknown]
  - Fluid overload [Unknown]
  - Chills [Unknown]
  - Rhinovirus infection [Recovered/Resolved]
  - Weight increased [Recovering/Resolving]
  - Dyspnoea [Unknown]
  - Rash vesicular [Unknown]
  - Condition aggravated [Unknown]
  - Unevaluable event [Unknown]
  - Pruritus [Unknown]
  - Dialysis [Unknown]
  - Gait disturbance [Unknown]
  - Peripheral swelling [Unknown]
  - Nausea [Unknown]
  - Application site erythema [Unknown]
  - Cardio-respiratory arrest [Unknown]
  - Flushing [Unknown]
  - Pain in jaw [Unknown]
  - Death [Fatal]
  - Urinary tract infection [Recovered/Resolved]
  - Feeling hot [Unknown]
  - Bone pain [Unknown]
  - Hypersensitivity [Unknown]
  - Malaise [Unknown]
  - Hyperhidrosis [Unknown]
  - Dermatitis [Unknown]

NARRATIVE: CASE EVENT DATE: 20181112
